FAERS Safety Report 5643634-9 (Version None)
Quarter: 2008Q1

REPORT INFORMATION
  Report Type: 
  Country: None (occurrence: None)
  Receive Date: 20080228
  Receipt Date: 20080218
  Transmission Date: 20080703
  Serious: Yes (Other)
  Sender: FDA-Public Use
  Company Number: US-PFIZER INC-2007107054

PATIENT
  Sex: Female
  Weight: 65.8 kg

DRUGS (4)
  1. CHANTIX [Suspect]
     Indication: SMOKING CESSATION THERAPY
     Route: 048
     Dates: start: 20071104, end: 20071112
  2. XANAX [Concomitant]
     Indication: ANXIETY
  3. SYNTHROID [Concomitant]
     Indication: THYROID DISORDER
  4. LIPITOR [Concomitant]
     Indication: BLOOD CHOLESTEROL

REACTIONS (9)
  - ADVERSE DRUG REACTION [None]
  - ANXIETY [None]
  - DEPRESSION [None]
  - FALL [None]
  - FEELING JITTERY [None]
  - HEADACHE [None]
  - NERVOUSNESS [None]
  - STOMACH DISCOMFORT [None]
  - SUICIDAL IDEATION [None]
